FAERS Safety Report 4909181-4 (Version None)
Quarter: 2006Q1

REPORT INFORMATION
  Report Type: 
  Country: None (occurrence: None)
  Receive Date: 20060209
  Receipt Date: 20060209
  Transmission Date: 20060701
  Serious: Yes (Other)
  Sender: FDA-Public Use
  Company Number: None

PATIENT
  Age: 65 Year
  Sex: Male
  Weight: 89.8122 kg

DRUGS (7)
  1. AVANDIA [Suspect]
     Indication: DIABETES MELLITUS NON-INSULIN-DEPENDENT
     Dosage: 4 MG INITIALLY; THEN 2MG DAILY WITH DINNER PO
     Route: 048
     Dates: start: 20051015, end: 20060131
  2. GLUCOPHAGE [Concomitant]
  3. DIOVAN [Concomitant]
  4. ALLEGRA [Concomitant]
  5. PEPCID [Concomitant]
  6. PROTONIX [Concomitant]
  7. LIPITOR [Concomitant]

REACTIONS (4)
  - OEDEMA PERIPHERAL [None]
  - RASH MACULO-PAPULAR [None]
  - VISION BLURRED [None]
  - VISUAL DISTURBANCE [None]
